FAERS Safety Report 22273311 (Version 1)
Quarter: 2023Q2

REPORT INFORMATION
  Report Type: Spontaneous
  Country: NL (occurrence: NL)
  Receive Date: 20230502
  Receipt Date: 20230502
  Transmission Date: 20230722
  Serious: Yes (Other)
  Sender: FDA-Public Use
  Company Number: NL-LRB-00869097

PATIENT
  Sex: Male
  Weight: 83 kg

DRUGS (2)
  1. ESOMEPRAZOLE SODIUM [Suspect]
     Active Substance: ESOMEPRAZOLE SODIUM
     Indication: Prophylaxis
     Dosage: 20 MILLIGRAM, DAILY
     Route: 065
     Dates: start: 20230216, end: 20230226
  2. ACETYLSALICYLZUUR / Brand name not specified [Concomitant]
     Indication: Product used for unknown indication
     Dosage: 1 X PER DAY 1 PIECE
     Route: 065

REACTIONS (6)
  - Haematuria [Recovering/Resolving]
  - Product substitution issue [Unknown]
  - Abdominal discomfort [Recovering/Resolving]
  - Dysuria [Recovering/Resolving]
  - Urethral pain [Recovering/Resolving]
  - Nausea [Recovering/Resolving]
